FAERS Safety Report 5726145-1 (Version None)
Quarter: 2008Q2

REPORT INFORMATION
  Report Type: 
  Country: None (occurrence: None)
  Receive Date: 20080502
  Receipt Date: 20080423
  Transmission Date: 20081010
  Serious: Yes (Life-Threatening, Hospitalization)
  Sender: FDA-Public Use
  Company Number: DE-AMGEN-US276409

PATIENT
  Sex: Female

DRUGS (11)
  1. ENBREL [Suspect]
     Indication: RHEUMATOID ARTHRITIS
     Route: 058
     Dates: start: 20071101, end: 20080103
  2. ARAVA [Suspect]
     Indication: RHEUMATOID ARTHRITIS
     Route: 048
  3. ISOZID [Concomitant]
     Route: 048
     Dates: start: 20071001, end: 20071001
  4. IBUPROFEN TABLETS [Concomitant]
     Route: 065
  5. NEXIUM [Concomitant]
     Route: 065
  6. KETOPROFEN [Concomitant]
     Route: 065
  7. VIGANTOLETTEN [Concomitant]
     Route: 065
  8. FOLIC ACID [Concomitant]
     Route: 065
  9. METAMIZOLE [Concomitant]
     Route: 065
  10. TRAMADOL HCL [Concomitant]
     Route: 065
  11. METOPROLOL TARTRATE [Concomitant]
     Route: 065

REACTIONS (4)
  - MUCOSAL INFLAMMATION [None]
  - MULTI-ORGAN FAILURE [None]
  - PANCREATITIS [None]
  - SHOCK [None]
